FAERS Safety Report 11105841 (Version 1)
Quarter: 2015Q2

REPORT INFORMATION
  Report Type: Spontaneous
  Country: US (occurrence: None)
  Receive Date: 20150508
  Receipt Date: 20150508
  Transmission Date: 20150821
  Serious: Yes (Disabling)
  Sender: FDA-Public Use
  Company Number: None

PATIENT
  Age: 39 Year
  Sex: Male
  Weight: 89.81 kg

DRUGS (1)
  1. OXYCODONE [Suspect]
     Active Substance: OXYCODONE
     Dosage: 1-2 TABLETS EVERY 4 HRS, FOUR TIMES DAILY, TAKEN BY MOUTH
     Route: 048

REACTIONS (3)
  - Product quality issue [None]
  - Inadequate analgesia [None]
  - Product substitution issue [None]

NARRATIVE: CASE EVENT DATE: 20150507
